FAERS Safety Report 4478160-6 (Version None)
Quarter: 2004Q4

REPORT INFORMATION
  Report Type: 
  Country: None (occurrence: None)
  Receive Date: 20041019
  Receipt Date: 20041008
  Transmission Date: 20050328
  Serious: Yes (Other)
  Sender: FDA-Public Use
  Company Number: US-JNJFOC-20041003375

PATIENT
  Sex: Male
  Weight: 92.99 kg

DRUGS (12)
  1. REMICADE [Suspect]
     Route: 042
  2. REMICADE [Suspect]
     Indication: RHEUMATOID ARTHRITIS
     Route: 042
  3. PREDNISONE TAB [Concomitant]
  4. TYLENOL [Concomitant]
  5. ATENOLOL [Concomitant]
     Indication: HYPERTENSION
  6. AMILORIDE [Concomitant]
     Indication: HYPERTENSION
     Dosage: 5/50, QD
  7. OSCAL [Concomitant]
  8. VITAMIN B COMPLEX CAP [Concomitant]
  9. VITAMIN E [Concomitant]
  10. GLUCOPHAGE [Concomitant]
     Indication: DIABETES MELLITUS
  11. TRICOR [Concomitant]
     Indication: DIABETES MELLITUS
  12. DIPHENHYDRAMINE HCL [Concomitant]

REACTIONS (7)
  - CHEST PAIN [None]
  - CHILLS [None]
  - DIABETES MELLITUS NON-INSULIN-DEPENDENT [None]
  - ENERGY INCREASED [None]
  - HOT FLUSH [None]
  - INFUSION RELATED REACTION [None]
  - INSOMNIA [None]
